FAERS Safety Report 12197545 (Version 1)
Quarter: 2016Q1

REPORT INFORMATION
  Report Type: Spontaneous
  Country: US (occurrence: US)
  Receive Date: 20160322
  Receipt Date: 20160322
  Transmission Date: 20160526
  Serious: Yes (Other)
  Sender: FDA-Public Use
  Company Number: US-ASTRAZENECA-2016SE29445

PATIENT
  Sex: Female

DRUGS (9)
  1. LORATADINE. [Concomitant]
     Active Substance: LORATADINE
     Dosage: 10 MG TAKE ONE TABLET BY MOUTH DALLY
     Route: 048
  2. LOSARTAN POTASSIUM. [Concomitant]
     Active Substance: LOSARTAN POTASSIUM
     Dosage: 25 MG TAKE ONE TABLET BY MOUTH DALLY
     Route: 048
  3. LEVITRA [Concomitant]
     Active Substance: VARDENAFIL HYDROCHLORIDE TRIHYDRATE
  4. TOPROL XL [Suspect]
     Active Substance: METOPROLOL SUCCINATE
     Route: 048
  5. SUMATRIPTAN SUCCINATE. [Concomitant]
     Active Substance: SUMATRIPTAN SUCCINATE
     Dosage: ONE PILL BY MOUTH AT ONSET OF HEADACHE, NO MORE THEN TWO DOSES IN 24 HOURS
  6. AERS [Concomitant]
     Dosage: INHALE 1 TO 2 PUFFS EVERY 4 HOURS AS NEEDED FOR SHORTNESS OF BREATH
  7. TRAZODONE HYDROCHLORIDE. [Concomitant]
     Active Substance: TRAZODONE HYDROCHLORIDE
     Dosage: TAKE ONE AND A HALF TABLETS BY MOUTH AT BEDTLME
     Route: 048
  8. PROAIR HFA [Concomitant]
     Active Substance: ALBUTEROL SULFATE
     Dosage: (90 BASE) MCG/ACT
  9. LYRICA [Suspect]
     Active Substance: PREGABALIN
     Route: 048

REACTIONS (24)
  - Depression [Unknown]
  - Cough [Unknown]
  - Vertebral artery dissection [Unknown]
  - Gastrooesophageal reflux disease [Unknown]
  - Fibromyalgia [Unknown]
  - Headache [Unknown]
  - Essential hypertension [Unknown]
  - Sinusitis [Unknown]
  - Back pain [Unknown]
  - Cerebellar infarction [Unknown]
  - Dizziness [Unknown]
  - Erectile dysfunction [Unknown]
  - Myalgia [Unknown]
  - Vomiting [Unknown]
  - Affective disorder [Unknown]
  - Pyrexia [Unknown]
  - Hyperlipidaemia [Unknown]
  - Rectal haemorrhage [Unknown]
  - Pain in extremity [Unknown]
  - Haematoma [Unknown]
  - Aortic aneurysm [Unknown]
  - Ehlers-Danlos syndrome [Unknown]
  - Abdominal pain [Unknown]
  - Night sweats [Unknown]
